FAERS Safety Report 21298274 (Version 1)
Quarter: 2022Q3

REPORT INFORMATION
  Report Type: Spontaneous
  Country: US (occurrence: None)
  Receive Date: 20220902
  Receipt Date: 20220902
  Transmission Date: 20221027
  Serious: Yes (Other)
  Sender: FDA-Public Use
  Company Number: None

PATIENT
  Age: 36 Year
  Sex: Male
  Weight: 56.07 kg

DRUGS (2)
  1. CLOZAPINE [Suspect]
     Active Substance: CLOZAPINE
     Dosage: FREQUENCY : AT BEDTIME;?
     Route: 048
     Dates: start: 20220316
  2. CLOZAPINE [Suspect]
     Active Substance: CLOZAPINE
     Dosage: FREQUENCY : DAILY;?
     Route: 048
     Dates: start: 20220316

REACTIONS (4)
  - Agitation [None]
  - Aggression [None]
  - Refusal of treatment by patient [None]
  - Neutrophil count abnormal [None]

NARRATIVE: CASE EVENT DATE: 20220518
